FAERS Safety Report 5163169-X (Version None)
Quarter: 2006Q4

REPORT INFORMATION
  Report Type: 
  Country: None (occurrence: None)
  Receive Date: 20061204
  Receipt Date: 20061124
  Transmission Date: 20070319
  Serious: Yes (Hospitalization)
  Sender: FDA-Public Use
  Company Number: FR-JNJFOC-20061105770

PATIENT
  Age: 85 Year
  Sex: Female

DRUGS (7)
  1. RISPERDAL [Suspect]
     Indication: DRUG USE FOR UNKNOWN INDICATION
     Route: 048
  2. COZAAR [Concomitant]
     Route: 065
  3. MONO-TILDIEM [Concomitant]
     Route: 065
  4. ASPIRIN [Concomitant]
     Route: 065
  5. NITRODERM [Concomitant]
     Route: 065
  6. OMEPRAZOLE [Concomitant]
     Route: 065
  7. HAVLANE [Concomitant]
     Route: 065

REACTIONS (3)
  - DRUG TOXICITY [None]
  - FALL [None]
  - SLEEP PHASE RHYTHM DISTURBANCE [None]
